FAERS Safety Report 20411210 (Version 1)
Quarter: 2022Q1

REPORT INFORMATION
  Report Type: Spontaneous
  Country: US (occurrence: None)
  Receive Date: 20220201
  Receipt Date: 20220201
  Transmission Date: 20220423
  Serious: Yes (Other)
  Sender: FDA-Public Use
  Company Number: None

PATIENT
  Age: 72 Year
  Sex: Female

DRUGS (4)
  1. PEGASYS [Suspect]
     Active Substance: PEGINTERFERON ALFA-2A
     Indication: Myeloproliferative neoplasm
     Dosage: 180 MCG/ML;? ?INJECT 0.27 ML (50 MCG) UNDER THE SKIN (SUBCUTANEOUS INJECTION) ONCE WEEKLY, KEEP REFR
     Route: 058
     Dates: start: 20190315
  2. HYDROCODONE CAP [Concomitant]
  3. METHOCARBAM TAB [Concomitant]
  4. METHYLPRED TAB [Concomitant]

REACTIONS (3)
  - Back disorder [None]
  - Gait inability [None]
  - Pain [None]

NARRATIVE: CASE EVENT DATE: 20220122
